FAERS Safety Report 17808465 (Version 4)
Quarter: 2020Q3

REPORT INFORMATION
  Report Type: Spontaneous
  Country: GR (occurrence: GR)
  Receive Date: 20200520
  Receipt Date: 20200717
  Transmission Date: 20201102
  Serious: Yes (Disabling, Other)
  Sender: FDA-Public Use
  Company Number: GR-009507513-2005GRC006194

PATIENT
  Age: 72 Year
  Sex: Male
  Weight: 78 kg

DRUGS (2)
  1. KEYTRUDA [Suspect]
     Active Substance: PEMBROLIZUMAB
     Dosage: 200MG EVERY 3 WEEKS
     Route: 042
     Dates: start: 20200602
  2. KEYTRUDA [Suspect]
     Active Substance: PEMBROLIZUMAB
     Indication: NON-SMALL CELL LUNG CANCER STAGE IV
     Dosage: 200MG EVERY 3 WEEKS
     Route: 042
     Dates: start: 20190624, end: 20200409

REACTIONS (7)
  - Oral mucosal eruption [Not Recovered/Not Resolved]
  - Inappropriate schedule of product administration [Unknown]
  - Oral mucosal erythema [Not Recovered/Not Resolved]
  - Erythema [Not Recovered/Not Resolved]
  - Non-small cell lung cancer recurrent [Unknown]
  - Rash [Not Recovered/Not Resolved]
  - Immune-mediated dermatitis [Not Recovered/Not Resolved]

NARRATIVE: CASE EVENT DATE: 20200415
